FAERS Safety Report 5734753-7 (Version None)
Quarter: 2008Q2

REPORT INFORMATION
  Report Type: 
  Country: None (occurrence: None)
  Receive Date: 20080508
  Receipt Date: 20080508
  Transmission Date: 20081010
  Serious: No
  Sender: FDA-Public Use
  Company Number: None

PATIENT
  Age: 30 Year
  Sex: Male
  Weight: 63.5036 kg

DRUGS (1)
  1. CREST PRO HEALTH 0 CREST PRO HEALTH [Suspect]
     Dates: start: 20070501, end: 20070715

REACTIONS (1)
  - TOOTH DISCOLOURATION [None]
